FAERS Safety Report 12630166 (Version 2)
Quarter: 2016Q3

REPORT INFORMATION
  Report Type: Spontaneous
  Country: US (occurrence: US)
  Receive Date: 20160808
  Receipt Date: 20160902
  Transmission Date: 20161109
  Serious: Yes (Other)
  Sender: FDA-Public Use
  Company Number: US-SMITH AND NEPHEW, INC-2016SMT00645

PATIENT
  Sex: Male
  Weight: 129.25 kg

DRUGS (12)
  1. BABY ASPIRIN [Concomitant]
     Active Substance: ASPIRIN
     Dosage: 81 MG, 1X/DAY
  2. DEMADEX [Concomitant]
     Active Substance: TORSEMIDE
  3. GLUCAGON. [Concomitant]
     Active Substance: GLUCAGON
  4. REGRANEX [Suspect]
     Active Substance: BECAPLERMIN
     Indication: WOUND
     Dosage: UNK, 1X/DAY
     Route: 061
     Dates: start: 20160620, end: 20160630
  5. METFORMIN [Concomitant]
     Active Substance: METFORMIN HYDROCHLORIDE
     Dosage: 1000
  6. NOVOLOG [Concomitant]
     Active Substance: INSULIN ASPART
     Dosage: 25 U, 1X/DAY
  7. NOVOLOG [Concomitant]
     Active Substance: INSULIN ASPART
     Dosage: 22 U, 1X/DAY
  8. COZAAR [Concomitant]
     Active Substance: LOSARTAN POTASSIUM
     Dosage: 100 MG, 1X/DAY
  9. COREG [Concomitant]
     Active Substance: CARVEDILOL
  10. LEVAMIR [Concomitant]
     Dosage: 45 U, 2X/DAY
  11. ACTOS [Concomitant]
     Active Substance: PIOGLITAZONE HYDROCHLORIDE
     Dosage: 30 MG, 1X/DAY
  12. PRAVACHOL [Concomitant]
     Active Substance: PRAVASTATIN SODIUM

REACTIONS (11)
  - Osteomyelitis [Unknown]
  - Peripheral swelling [Unknown]
  - Exostosis [Unknown]
  - Abscess [Unknown]
  - Osteoarthritis [Unknown]
  - Osteoporosis [Unknown]
  - Subcutaneous emphysema [Unknown]
  - Infection [Unknown]
  - Sensory loss [Unknown]
  - Pulse absent [Unknown]
  - Necrosis [Unknown]

NARRATIVE: CASE EVENT DATE: 2016
